FAERS Safety Report 9028060 (Version 1)
Quarter: 2013Q1

REPORT INFORMATION
  Report Type: Spontaneous
  Country: BR (occurrence: BR)
  Receive Date: 20130123
  Receipt Date: 20130123
  Transmission Date: 20140127
  Serious: Yes (Other)
  Sender: FDA-Public Use
  Company Number: BR-BRISTOL-MYERS SQUIBB COMPANY-17299652

PATIENT
  Age: 46 Year
  Sex: Male

DRUGS (1)
  1. ONGLYZA TABS 5 MG [Suspect]
     Indication: DIABETES MELLITUS
     Dosage: REDUCED TO 2.5MG IN JAN2013
     Route: 048

REACTIONS (2)
  - Renal disorder [Unknown]
  - Blood potassium increased [Recovered/Resolved]
